FAERS Safety Report 6271972-8 (Version None)
Quarter: 2009Q3

REPORT INFORMATION
  Report Type: 
  Country: None (occurrence: None)
  Receive Date: 20090713
  Receipt Date: 20090403
  Transmission Date: 20100115
  Serious: No
  Sender: FDA-Public Use
  Company Number: 2009BM000087

PATIENT
  Age: 19 Year
  Sex: Male

DRUGS (4)
  1. KUVAN [Suspect]
     Indication: PHENYLKETONURIA
     Dosage: 1400 MG; QD; PO
     Route: 048
     Dates: start: 20090324, end: 20090328
  2. ADDERALL 10 [Concomitant]
  3. CYMBALTA [Concomitant]
  4. ALBUTEROL [Concomitant]

REACTIONS (6)
  - ABDOMINAL DISCOMFORT [None]
  - CHEST PAIN [None]
  - DYSPNOEA [None]
  - MUSCULAR WEAKNESS [None]
  - VISION BLURRED [None]
  - VISUAL IMPAIRMENT [None]
